FAERS Safety Report 5670061-0 (Version None)
Quarter: 2008Q1

REPORT INFORMATION
  Report Type: 
  Country: None (occurrence: None)
  Receive Date: 20080317
  Receipt Date: 20080311
  Transmission Date: 20080703
  Serious: Yes (Hospitalization)
  Sender: FDA-Public Use
  Company Number: JP-MERCK-0803USA01940

PATIENT
  Age: 67 Year
  Sex: Female

DRUGS (5)
  1. PEPCID RPD [Suspect]
     Indication: DUODENAL ULCER
     Route: 048
  2. SAWACILLIN [Suspect]
     Indication: HELICOBACTER INFECTION
     Route: 048
     Dates: start: 20080116, end: 20080121
  3. KLARICID [Suspect]
     Indication: HELICOBACTER INFECTION
     Route: 048
     Dates: start: 20080116, end: 20080121
  4. TAKEPRON [Suspect]
     Indication: HELICOBACTER INFECTION
     Route: 048
     Dates: start: 20080116, end: 20080121
  5. DEPAS [Suspect]
     Route: 048

REACTIONS (1)
  - DRUG ERUPTION [None]
